FAERS Safety Report 7930962-7 (Version None)
Quarter: 2011Q4

REPORT INFORMATION
  Report Type: 
  Country: None (occurrence: None)
  Receive Date: 20111121
  Receipt Date: 20111116
  Transmission Date: 20120403
  Serious: No
  Sender: FDA-Public Use
  Company Number: US-PFIZER INC-2011281714

PATIENT
  Age: 91 Year
  Sex: Female

DRUGS (4)
  1. ZETIA [Concomitant]
     Dosage: UNK
  2. CODEINE SULFATE [Suspect]
     Dosage: UNK
  3. HEPARIN SODIUM [Suspect]
     Dosage: UNK
  4. ZANTAC [Suspect]
     Dosage: UNK

REACTIONS (2)
  - RASH GENERALISED [None]
  - FEELING ABNORMAL [None]
